FAERS Safety Report 7957178-2 (Version None)
Quarter: 2011Q4

REPORT INFORMATION
  Report Type: 
  Country: None (occurrence: None)
  Receive Date: 20111205
  Receipt Date: 20110314
  Transmission Date: 20120403
  Serious: Yes (Other)
  Sender: FDA-Public Use
  Company Number: KR-ROCHE-GNE310930

PATIENT
  Age: 32 Week
  Weight: 1.702 kg

DRUGS (2)
  1. LASER THERAPY [Suspect]
     Indication: PRODUCT USED FOR UNKNOWN INDICATION
  2. LUCENTIS [Suspect]
     Indication: RETINOPATHY OF PREMATURITY
     Dosage: 0.3 MG, UNK
     Route: 050

REACTIONS (3)
  - RETINAL DETACHMENT [None]
  - HYPERBILIRUBINAEMIA [None]
  - HYPOGLYCAEMIA [None]
